FAERS Safety Report 9636050 (Version 2)
Quarter: 2013Q4

REPORT INFORMATION
  Report Type: Report from Study
  Country: AR (occurrence: AR)
  Receive Date: 20131021
  Receipt Date: 20131112
  Transmission Date: 20140711
  Serious: Yes (Other)
  Sender: FDA-Public Use
  Company Number: PHHY2013AR118287

PATIENT
  Sex: Female

DRUGS (2)
  1. DIOVAN [Suspect]
     Indication: HYPERTENSION
     Dosage: 1 TABLET (160 MG), DAILY
     Route: 048
     Dates: start: 201304
  2. DIOVAN [Suspect]
     Dosage: 1.5 TABLET (160 MG), SOMETIMES
     Route: 048

REACTIONS (6)
  - Visual impairment [Not Recovered/Not Resolved]
  - Optic nerve disorder [Not Recovered/Not Resolved]
  - Dacryostenosis acquired [Not Recovered/Not Resolved]
  - Blood pressure diastolic decreased [Recovering/Resolving]
  - Blood pressure systolic increased [Recovering/Resolving]
  - Wrong technique in drug usage process [Unknown]
